FAERS Safety Report 13421873 (Version 3)
Quarter: 2017Q2

REPORT INFORMATION
  Report Type: Spontaneous
  Country: US (occurrence: US)
  Receive Date: 20170410
  Receipt Date: 20170417
  Transmission Date: 20170830
  Serious: No
  Sender: FDA-Public Use
  Company Number: US-PFIZER INC-2017153653

PATIENT
  Age: 79 Year
  Sex: Female
  Weight: 59 kg

DRUGS (1)
  1. XALKORI [Suspect]
     Active Substance: CRIZOTINIB
     Indication: LUNG NEOPLASM MALIGNANT
     Dosage: 250 MG, 2X/DAY
     Route: 048
     Dates: start: 20170128

REACTIONS (10)
  - Photopsia [Unknown]
  - Arthralgia [Unknown]
  - Nausea [Recovering/Resolving]
  - Fatigue [Recovering/Resolving]
  - Oedema [Recovering/Resolving]
  - Electrolyte imbalance [Unknown]
  - Hallucination, visual [Recovered/Resolved]
  - Weight increased [Recovering/Resolving]
  - Malaise [Unknown]
  - Gait disturbance [Unknown]

NARRATIVE: CASE EVENT DATE: 2017
